FAERS Safety Report 8757712 (Version 1)
Quarter: 2012Q4

REPORT INFORMATION
  Report Type: 
  Country: JP (occurrence: JP)
  Receive Date: 20120828
  Receipt Date: 20120828
  Transmission Date: 20130627
  Serious: Yes (Hospitalization)
  Sender: FDA-Public Use
  Company Number: JP-WATSON-2012-14635

PATIENT
  Age: 62 Year
  Sex: Male

DRUGS (1)
  1. IBUPROFEN [Suspect]
     Indication: HEADACHE
     Dosage: 400 mg, daily
     Route: 065

REACTIONS (4)
  - Extranodal marginal zone B-cell lymphoma (MALT type) [Recovered/Resolved]
  - Gastrointestinal disorder [Recovered/Resolved]
  - Small intestinal stenosis [None]
  - Ileal ulcer [None]
